FAERS Safety Report 6998963-3 (Version None)
Quarter: 2010Q3

REPORT INFORMATION
  Report Type: 
  Country: None (occurrence: None)
  Receive Date: 20100920
  Receipt Date: 20100312
  Transmission Date: 20110219
  Serious: Yes (Other)
  Sender: FDA-Public Use
  Company Number: US-ASTRAZENECA-2010SE10895

PATIENT
  Sex: Female

DRUGS (2)
  1. SEROQUEL XR [Suspect]
     Indication: MAJOR DEPRESSION
     Route: 048
     Dates: start: 20100101, end: 20100101
  2. KLONOPIN [Concomitant]
     Indication: MAJOR DEPRESSION

REACTIONS (3)
  - AGITATION [None]
  - ANGER [None]
  - SUICIDAL BEHAVIOUR [None]
